FAERS Safety Report 25043971 (Version 1)
Quarter: 2025Q1

REPORT INFORMATION
  Report Type: Spontaneous
  Country: US (occurrence: US)
  Receive Date: 20250306
  Receipt Date: 20250306
  Transmission Date: 20250409
  Serious: Yes (Hospitalization, Other)
  Sender: ALKEM
  Company Number: US-ALKEM LABORATORIES LIMITED-US-ALKEM-2025-02227

PATIENT
  Age: 6 Decade
  Sex: Male

DRUGS (9)
  1. TIZANIDINE [Interacting]
     Active Substance: TIZANIDINE
     Indication: Back pain
     Dosage: 8 MILLIGRAM, TID
     Route: 065
  2. TIZANIDINE [Interacting]
     Active Substance: TIZANIDINE
     Indication: Muscle spasms
     Route: 065
  3. AZITHROMYCIN [Suspect]
     Active Substance: AZITHROMYCIN
     Indication: Pneumonia
     Route: 065
  4. LISINOPRIL [Interacting]
     Active Substance: LISINOPRIL
     Indication: Hypertension
     Dosage: 20 MILLIGRAM, QD (RESTARTED DOSE)
     Route: 065
  5. LISINOPRIL [Interacting]
     Active Substance: LISINOPRIL
     Route: 065
  6. HYDROCHLOROTHIAZIDE [Concomitant]
     Active Substance: HYDROCHLOROTHIAZIDE
     Indication: Hypertension
     Route: 065
  7. HYDRALAZINE [Concomitant]
     Active Substance: HYDRALAZINE HYDROCHLORIDE
     Indication: Hypertension
     Route: 065
  8. Metoprolol Succinate/Tartrate [Concomitant]
     Indication: Hypertension
     Dosage: 25 MILLIGRAM, BID (RESTARTED DOSE)
     Route: 065
  9. Metoprolol Succinate/Tartrate [Concomitant]
     Route: 065

REACTIONS (3)
  - Drug interaction [Unknown]
  - Electrocardiogram QT prolonged [Recovered/Resolved]
  - Hypotension [Recovered/Resolved]
